FAERS Safety Report 6192750-4 (Version None)
Quarter: 2009Q2

REPORT INFORMATION
  Report Type: 
  Country: None (occurrence: None)
  Receive Date: 20090518
  Receipt Date: 20090514
  Transmission Date: 20091009
  Serious: Yes (Hospitalization, Other)
  Sender: FDA-Public Use
  Company Number: US-BRISTOL-MYERS SQUIBB COMPANY-14624597

PATIENT
  Age: 44 Year
  Sex: Female

DRUGS (7)
  1. COUMADIN [Suspect]
     Dosage: DOSE INCREASED TO 5 MG
     Route: 065
  2. REVLIMID [Suspect]
     Indication: MULTIPLE MYELOMA
     Dosage: INTERRUPTED ON 11MAR09 AND RESTARTED ON 16MAR09 AT 25MG PO QD.CAPSULES
     Route: 048
     Dates: start: 20090201
  3. ATIVAN [Concomitant]
     Dosage: FORMULATION: TABS(1 MG) AND INJECTION (2MG/ML).
     Route: 065
  4. ZOMETA [Concomitant]
     Dosage: 1 DF= 4MG/5ML.INJECTION
     Route: 065
  5. ARIXTRA [Concomitant]
     Dosage: DF=2.5/0.5.UNIT NOT SPECIFIED.
     Route: 065
  6. HEPARIN [Concomitant]
     Route: 065
  7. LIPITOR [Concomitant]
     Route: 065

REACTIONS (3)
  - MYOCARDIAL INFARCTION [None]
  - TOOTH INFECTION [None]
  - URTICARIA [None]
